FAERS Safety Report 13975909 (Version 3)
Quarter: 2017Q4

REPORT INFORMATION
  Report Type: Report from Study
  Country: TR (occurrence: TR)
  Receive Date: 20170915
  Receipt Date: 20171113
  Transmission Date: 20180321
  Serious: Yes (Death, Life-Threatening, Hospitalization)
  Sender: FDA-Public Use
  Company Number: TR-ASTRAZENECA-2017SE92581

PATIENT
  Age: 20566 Day

DRUGS (8)
  1. DEXAMETHASONE. [Concomitant]
     Active Substance: DEXAMETHASONE
     Indication: PAIN
     Route: 048
     Dates: start: 20170727, end: 20170821
  2. DEXAMETHASONE. [Concomitant]
     Active Substance: DEXAMETHASONE
     Indication: NAUSEA
     Route: 048
     Dates: start: 20170822, end: 20170905
  3. CONTRAMAL REGARD [Concomitant]
     Indication: TUMOUR PAIN
     Route: 048
     Dates: start: 20170812
  4. DEXAMETHASONE. [Concomitant]
     Active Substance: DEXAMETHASONE
     Indication: NAUSEA
     Route: 048
     Dates: start: 20170906, end: 20170908
  5. OLAPARIB. [Suspect]
     Active Substance: OLAPARIB
     Indication: PROSTATE CANCER METASTATIC
     Route: 048
     Dates: start: 20170906, end: 20170908
  6. DEXAMETHASONE. [Concomitant]
     Active Substance: DEXAMETHASONE
     Indication: NAUSEA
     Route: 048
     Dates: start: 20170727, end: 20170821
  7. DEXAMETHASONE. [Concomitant]
     Active Substance: DEXAMETHASONE
     Indication: PAIN
     Route: 048
     Dates: start: 20170822, end: 20170905
  8. DEXAMETHASONE. [Concomitant]
     Active Substance: DEXAMETHASONE
     Indication: PAIN
     Route: 048
     Dates: start: 20170906, end: 20170908

REACTIONS (3)
  - Neutropenia [Fatal]
  - Lung infection [Fatal]
  - Thrombocytopenia [Not Recovered/Not Resolved]

NARRATIVE: CASE EVENT DATE: 20170908
